FAERS Safety Report 8325119-4 (Version None)
Quarter: 2012Q2

REPORT INFORMATION
  Report Type: 
  Country: None (occurrence: None)
  Receive Date: 20120501
  Receipt Date: 20120327
  Transmission Date: 20120825
  Serious: No
  Sender: FDA-Public Use
  Company Number: US-ABBOTT-12P-163-0921338-00

PATIENT
  Sex: Female

DRUGS (2)
  1. UNKNOWN MEDICATION [Concomitant]
     Indication: BLOOD PRESSURE
  2. CREON [Suspect]
     Indication: PANCREATIC INSUFFICIENCY
     Dates: start: 20100101

REACTIONS (8)
  - AMNESIA [None]
  - CONTUSION [None]
  - BURNING SENSATION [None]
  - ERUCTATION [None]
  - ABNORMAL FAECES [None]
  - URINE ODOUR ABNORMAL [None]
  - DIZZINESS [None]
  - DYSPEPSIA [None]
